FAERS Safety Report 24611072 (Version 1)
Quarter: 2024Q4

REPORT INFORMATION
  Report Type: Spontaneous
  Country: US (occurrence: US)
  Receive Date: 20241113
  Receipt Date: 20241113
  Transmission Date: 20250114
  Serious: No
  Sender: AMGEN
  Company Number: US-AMGEN-USASP2024220138

PATIENT
  Age: 9 Month
  Sex: Male

DRUGS (10)
  1. BEVACIZUMAB [Suspect]
     Active Substance: BEVACIZUMAB
     Indication: Juvenile xanthogranuloma
     Dosage: 2.5 MILLIGRAM
     Route: 047
  2. BEVACIZUMAB [Suspect]
     Active Substance: BEVACIZUMAB
     Dosage: 1.25 MILLIGRAM
  3. PREDNISOLONE ACETATE [Concomitant]
     Active Substance: PREDNISOLONE ACETATE
     Indication: Juvenile xanthogranuloma
     Dosage: UNK UNK, QID
     Route: 061
  4. PREDNISOLONE ACETATE [Concomitant]
     Active Substance: PREDNISOLONE ACETATE
     Dosage: UNK, QD
     Route: 061
  5. FLUOROMETHOLONE [Concomitant]
     Active Substance: FLUOROMETHOLONE
     Indication: Juvenile xanthogranuloma
     Dosage: UNK UNK, QD
     Route: 065
  6. DORZOLAMIDE\TIMOLOL [Concomitant]
     Active Substance: DORZOLAMIDE\TIMOLOL
     Indication: Juvenile xanthogranuloma
  7. DIFLUPREDNATE [Concomitant]
     Active Substance: DIFLUPREDNATE
     Indication: Juvenile xanthogranuloma
     Dosage: UNK UNK, QID
     Route: 061
  8. DIFLUPREDNATE [Concomitant]
     Active Substance: DIFLUPREDNATE
     Dosage: UNK, QD
     Route: 061
  9. LATANOPROST [Concomitant]
     Active Substance: LATANOPROST
     Indication: Juvenile xanthogranuloma
     Dosage: UNK UNK, QHS
     Route: 065
  10. APRACLONIDINE [Concomitant]
     Active Substance: APRACLONIDINE HYDROCHLORIDE
     Indication: Juvenile xanthogranuloma
     Dosage: UNK UNK, QID
     Route: 065

REACTIONS (2)
  - Drug ineffective for unapproved indication [Unknown]
  - Off label use [Unknown]
